FAERS Safety Report 4487342-9 (Version None)
Quarter: 2004Q4

REPORT INFORMATION
  Report Type: 
  Country: None (occurrence: None)
  Receive Date: 20041022
  Receipt Date: 20041018
  Transmission Date: 20050328
  Serious: Yes (Other)
  Sender: FDA-Public Use
  Company Number: 04CH000007

PATIENT
  Age: 68 Year
  Sex: Female

DRUGS (5)
  1. LITHIUM CARBONATE [Suspect]
     Indication: BIPOLAR DISORDER
  2. CARBAMAZEPINE [Concomitant]
  3. PIPAMPERONE (PIPAMERONE) [Concomitant]
  4. MIRTAZAPINE [Concomitant]
  5. ROFECOXIB [Concomitant]

REACTIONS (5)
  - BRADYCARDIA [None]
  - HYPOKINESIA [None]
  - RENAL IMPAIRMENT [None]
  - THERAPEUTIC AGENT TOXICITY [None]
  - TREMOR [None]
